FAERS Safety Report 6026305-9 (Version None)
Quarter: 2008Q4

REPORT INFORMATION
  Report Type: 
  Country: None (occurrence: None)
  Receive Date: 20081230
  Receipt Date: 20081216
  Transmission Date: 20090506
  Serious: Yes (Hospitalization, Other)
  Sender: FDA-Public Use
  Company Number: WAES 0812GBR00020

PATIENT
  Age: 55 Year
  Sex: Male

DRUGS (6)
  1. VYTORIN [Suspect]
     Indication: AORTIC STENOSIS
     Dosage: 10-40 MG/DAILY, PO
     Route: 048
     Dates: start: 20030912, end: 20080303
  2. AMILORIDE HYDROCHLORIDE (+) FUROSEMIDE [Concomitant]
  3. ASPIRIN [Concomitant]
  4. OMEPRAZOLE [Concomitant]
  5. WARFARIN SODIUM [Concomitant]
  6. ZOPICLONE [Concomitant]

REACTIONS (4)
  - BRANCHIAL CYST [None]
  - SQUAMOUS CELL CARCINOMA [None]
  - TONSIL CANCER [None]
  - TONSILLAR HYPERTROPHY [None]
